FAERS Safety Report 4737354-2 (Version None)
Quarter: 2005Q3

REPORT INFORMATION
  Report Type: 
  Country: None (occurrence: None)
  Receive Date: 20050809
  Receipt Date: 20050729
  Transmission Date: 20060218
  Serious: Yes (Life-Threatening, Hospitalization)
  Sender: FDA-Public Use
  Company Number: JP-BOEHRINGER INGELHEIM PHARMACEUTICALS, INC.-2005-BP-12864NB

PATIENT
  Sex: Female
  Weight: 58 kg

DRUGS (6)
  1. SPIRIVA [Suspect]
     Indication: BRONCHITIS CHRONIC
     Route: 055
     Dates: start: 20050712
  2. THEO-DUR [Concomitant]
     Indication: ASTHMA
     Route: 048
     Dates: start: 20050301
  3. NEUER [Concomitant]
     Indication: GASTRITIS
     Route: 048
     Dates: start: 20050412
  4. BITSAN [Concomitant]
     Indication: GASTRITIS
     Route: 048
     Dates: start: 20050607
  5. BIOFERMIN [Concomitant]
     Indication: ENTEROCOLITIS
     Route: 048
     Dates: start: 20050524
  6. HOLUNALIN:TAPE (TULOBUTEROL) [Concomitant]
     Indication: ASTHMA
     Route: 062
     Dates: start: 20050412

REACTIONS (1)
  - SUBARACHNOID HAEMORRHAGE [None]
